FAERS Safety Report 4738910-8 (Version None)
Quarter: 2005Q3

REPORT INFORMATION
  Report Type: 
  Country: None (occurrence: None)
  Receive Date: 20050804
  Receipt Date: 20050722
  Transmission Date: 20060218
  Serious: Yes (Other)
  Sender: FDA-Public Use
  Company Number: 2005EU001673

PATIENT
  Sex: Male

DRUGS (8)
  1. PROGRAF [Suspect]
     Dosage: 4.00 MG, BID, ORAL
     Route: 048
     Dates: start: 20050516, end: 20050603
  2. DELTACORTIL (PREDNISOLONE) [Concomitant]
  3. IMURAN [Concomitant]
  4. AMBISOME [Concomitant]
  5. VALCYTE [Concomitant]
  6. TEICOPLANIN (TEICOPLANIN) [Concomitant]
  7. CIPROFLOXACIN HCL [Concomitant]
  8. METRONIDAZOLE [Concomitant]

REACTIONS (1)
  - SPEECH DISORDER [None]
